FAERS Safety Report 6004056-4 (Version None)
Quarter: 2008Q4

REPORT INFORMATION
  Report Type: 
  Country: None (occurrence: None)
  Receive Date: 20081216
  Receipt Date: 20081210
  Transmission Date: 20090506
  Serious: Yes (Other)
  Sender: FDA-Public Use
  Company Number: B0549786A

PATIENT
  Sex: Male

DRUGS (3)
  1. AMOXICILLIN [Suspect]
     Dosage: 1000MG PER DAY
  2. LANSOPRAZOLE [Suspect]
     Dosage: 60MG PER DAY
  3. CLARITHROMYCIN [Suspect]
     Dosage: 1000MG PER DAY

REACTIONS (2)
  - AMNESIA [None]
  - ANTISOCIAL BEHAVIOUR [None]
